FAERS Safety Report 7835156-1 (Version None)
Quarter: 2011Q4

REPORT INFORMATION
  Report Type: 
  Country: None (occurrence: None)
  Receive Date: 20111024
  Receipt Date: 20110812
  Transmission Date: 20120403
  Serious: Yes (Other)
  Sender: FDA-Public Use
  Company Number: PHHY2011BR86307

PATIENT
  Age: 71 Year
  Sex: Female

DRUGS (9)
  1. ATENOLOL [Suspect]
     Dosage: 50 MG, QD
     Route: 048
  2. CAPTOPRIL [Concomitant]
     Dosage: 100 MG, UNK
  3. ATENOLOL [Suspect]
     Dosage: 100 MG, QD
  4. SIMVASTATIN [Suspect]
     Dosage: 40 MG, QD
     Route: 048
  5. AMLODIPINE BESYLATE [Suspect]
     Dosage: 10 MG, QD
     Route: 048
  6. AMLODIPINE BESYLATE [Suspect]
     Dosage: 20 MG, QD
     Route: 048
  7. HYDROCHLOROTHIAZIDE [Concomitant]
     Dosage: 25 MG, UNK
  8. ASPIRIN [Concomitant]
     Dosage: 100 MG, UNK
  9. CLONIDINE [Concomitant]
     Dosage: 0.4 MG, QD

REACTIONS (2)
  - BLOOD PRESSURE INCREASED [None]
  - ATRIAL FIBRILLATION [None]
